FAERS Safety Report 9297412 (Version 1)
Quarter: 2013Q2

REPORT INFORMATION
  Report Type: Spontaneous
  Country: JP (occurrence: JP)
  Receive Date: 20130520
  Receipt Date: 20130520
  Transmission Date: 20140414
  Serious: Yes (Other)
  Sender: FDA-Public Use
  Company Number: JP-009507513-1305JPN009709

PATIENT
  Age: 37 Year
  Sex: Male

DRUGS (2)
  1. BETAMETHASONE [Suspect]
     Dosage: UNK
     Route: 048
     Dates: start: 200910, end: 200910
  2. BETAMETHASONE SODIUM PHOSPHATE [Suspect]
     Dosage: UNK
     Dates: start: 200910, end: 200911

REACTIONS (1)
  - Osteonecrosis [Unknown]
